FAERS Safety Report 25010911 (Version 1)
Quarter: 2025Q1

REPORT INFORMATION
  Report Type: Report from Study
  Country: DE (occurrence: DE)
  Receive Date: 20250225
  Receipt Date: 20250225
  Transmission Date: 20250409
  Serious: Yes (Hospitalization)
  Sender: ABBVIE
  Company Number: DE-ABBVIE-5894527

PATIENT
  Age: 82 Year
  Sex: Female

DRUGS (9)
  1. FOSCARBIDOPA\FOSLEVODOPA [Suspect]
     Active Substance: FOSCARBIDOPA\FOSLEVODOPA
     Indication: Parkinson^s disease
     Route: 058
     Dates: start: 20240718
  2. RIVASTIGMINE [Concomitant]
     Active Substance: RIVASTIGMINE
     Indication: Dementia
  3. VITAMIN D3 [Concomitant]
     Active Substance: CHOLECALCIFEROL
     Indication: Product used for unknown indication
  4. Crataeugus AL [Concomitant]
     Indication: Anxiety
     Route: 048
  5. Novalgin [Concomitant]
     Indication: Pain
  6. BENSERAZIDE HYDROCHLORIDE\LEVODOPA [Concomitant]
     Active Substance: BENSERAZIDE HYDROCHLORIDE\LEVODOPA
     Indication: Product used for unknown indication
  7. NEUPRO [Concomitant]
     Active Substance: ROTIGOTINE
     Indication: Product used for unknown indication
  8. RASAGILINE [Concomitant]
     Active Substance: RASAGILINE
     Indication: Product used for unknown indication
  9. RAMIPRIL [Concomitant]
     Active Substance: RAMIPRIL
     Indication: Product used for unknown indication

REACTIONS (9)
  - Dementia [Unknown]
  - Anxiety [Unknown]
  - Dyskinesia [Unknown]
  - Hypokinesia [Unknown]
  - Vertigo [Unknown]
  - Hyperkinesia [Unknown]
  - On and off phenomenon [Unknown]
  - Therapeutic product effect variable [Unknown]
  - Mobility decreased [Unknown]

NARRATIVE: CASE EVENT DATE: 20240101
